FAERS Safety Report 7407169-5 (Version None)
Quarter: 2011Q2

REPORT INFORMATION
  Report Type: 
  Country: None (occurrence: None)
  Receive Date: 20110411
  Receipt Date: 20110407
  Transmission Date: 20111010
  Serious: Yes (Hospitalization)
  Sender: FDA-Public Use
  Company Number: US-ROXANE LABORATORIES, INC.-2011-RO-00481RO

PATIENT
  Age: 41 Year
  Sex: Male

DRUGS (5)
  1. SOLIRIS [Suspect]
     Indication: PAROXYSMAL NOCTURNAL HAEMOGLOBINURIA
     Route: 042
  2. CYCLOSPORINE [Suspect]
  3. PREDNISONE [Suspect]
  4. DEFERASIROX [Concomitant]
  5. DEFEROXAMINE MESYLATE [Concomitant]

REACTIONS (6)
  - DEHYDRATION [None]
  - RENAL FAILURE [None]
  - ASTHENIA [None]
  - BLOOD GLUCOSE INCREASED [None]
  - ANAEMIA [None]
  - LEUKOPENIA [None]
